FAERS Safety Report 20508989 (Version 1)
Quarter: 2022Q1

REPORT INFORMATION
  Report Type: Report from Study
  Country: CN (occurrence: CN)
  Receive Date: 20220223
  Receipt Date: 20220223
  Transmission Date: 20220423
  Serious: Yes (Other)
  Sender: FDA-Public Use
  Company Number: CN-teijin-202200294_FE_P_1

PATIENT

DRUGS (1)
  1. FEBUXOSTAT [Suspect]
     Active Substance: FEBUXOSTAT
     Indication: Product used for unknown indication
     Dosage: UNK
     Route: 048

REACTIONS (12)
  - Alanine aminotransferase increased [Unknown]
  - Gamma-glutamyltransferase increased [Unknown]
  - Noninfective gingivitis [Unknown]
  - Back pain [Unknown]
  - Asthenia [Unknown]
  - Blood creatinine increased [Unknown]
  - Chest pain [Unknown]
  - Haematuria [Unknown]
  - Upper respiratory tract infection [Unknown]
  - Gout [Unknown]
  - Diarrhoea [Unknown]
  - Adverse event [Unknown]
